FAERS Safety Report 6041950-2 (Version None)
Quarter: 2009Q1

REPORT INFORMATION
  Report Type: 
  Country: None (occurrence: None)
  Receive Date: 20090116
  Receipt Date: 20090107
  Transmission Date: 20090719
  Serious: Yes (Hospitalization)
  Sender: FDA-Public Use
  Company Number: BR-PFIZER INC-2008081530

PATIENT

DRUGS (5)
  1. LYRICA [Suspect]
     Route: 048
     Dates: start: 20070901, end: 20081001
  2. GLIBENCLAMIDE [Concomitant]
     Route: 048
  3. ALDOMET [Concomitant]
     Route: 048
  4. DRUG, UNSPECIFIED [Concomitant]
     Route: 048
  5. THIAMINE HCL [Concomitant]
     Route: 048

REACTIONS (5)
  - DIABETES MELLITUS [None]
  - DIZZINESS [None]
  - FORMICATION [None]
  - HYPERTENSION [None]
  - MALAISE [None]
